FAERS Safety Report 9202342 (Version 2)
Quarter: 2013Q2

REPORT INFORMATION
  Report Type: Report from Study
  Country: IE (occurrence: IE)
  Receive Date: 20130401
  Receipt Date: 20130517
  Transmission Date: 20140414
  Serious: Yes (Hospitalization)
  Sender: FDA-Public Use
  Company Number: IE-ASTRAZENECA-2013SE12266

PATIENT
  Age: 74 Day
  Sex: Male
  Weight: 1.2 kg

DRUGS (2)
  1. SYNAGIS [Suspect]
     Indication: PREMATURE BABY
     Dosage: 15 MG/KG MONTHLY, 37 MG
     Route: 030
     Dates: start: 20130116, end: 20130116
  2. SYNAGIS [Suspect]
     Indication: RESPIRATORY SYNCYTIAL VIRUS INFECTION
     Dosage: 15 MG/KG MONTHLY, 37 MG
     Route: 030
     Dates: start: 20130116, end: 20130116

REACTIONS (2)
  - Respiratory syncytial virus bronchiolitis [Unknown]
  - Respiratory syncytial virus test positive [Recovered/Resolved]
